FAERS Safety Report 24132372 (Version 2)
Quarter: 2024Q3

REPORT INFORMATION
  Report Type: Spontaneous
  Country: IN (occurrence: IN)
  Receive Date: 20240724
  Receipt Date: 20240726
  Transmission Date: 20241017
  Serious: Yes (Other)
  Sender: PFIZER
  Company Number: IN-MLMSERVICE-20240711-PI128919-00232-1

PATIENT
  Age: 32 Year
  Sex: Male

DRUGS (5)
  1. METHYLPREDNISOLONE [Suspect]
     Active Substance: METHYLPREDNISOLONE
     Indication: Immunosuppressant drug therapy
     Dosage: 1000 MG
     Dates: start: 202103
  2. PREDNISOLONE [Suspect]
     Active Substance: PREDNISOLONE
     Indication: Immunosuppressant drug therapy
     Dosage: 1 MG/KG/DAY
     Dates: start: 202103
  3. THYMOCYTE IMMUNE GLOBULIN NOS [Suspect]
     Active Substance: THYMOCYTE IMMUNE GLOBULIN NOS
     Indication: Immunosuppressant drug therapy
     Dosage: 3 MG/KG
     Dates: start: 202103
  4. MYCOPHENOLATE MOFETIL [Suspect]
     Active Substance: MYCOPHENOLATE MOFETIL
     Indication: Immunosuppressant drug therapy
     Dosage: 1 G, 1X/DAY
     Dates: start: 202103
  5. TACROLIMUS [Suspect]
     Active Substance: TACROLIMUS
     Indication: Immunosuppressant drug therapy
     Dosage: 3.5 MG, 1X/DAY
     Dates: start: 202103

REACTIONS (3)
  - Fibrosarcoma [Recovered/Resolved]
  - Disease recurrence [Recovered/Resolved]
  - Spindle cell sarcoma [Recovered/Resolved]

NARRATIVE: CASE EVENT DATE: 20210801
